FAERS Safety Report 25935283 (Version 1)
Quarter: 2025Q4

REPORT INFORMATION
  Report Type: Spontaneous
  Country: US (occurrence: None)
  Receive Date: 20251017
  Receipt Date: 20251017
  Transmission Date: 20260117
  Serious: Yes (Hospitalization, Disabling)
  Sender: FDA-CTU
  Company Number: None

PATIENT
  Age: 36 Year
  Sex: Female
  Weight: 118.35 kg

DRUGS (13)
  1. ZOLOFT [Suspect]
     Active Substance: SERTRALINE HYDROCHLORIDE
  2. RISPERDAL [Suspect]
     Active Substance: RISPERIDONE
  3. ZYPREXA [Suspect]
     Active Substance: OLANZAPINE
  4. LITHIUM [Suspect]
     Active Substance: LITHIUM
  5. TOPAMAX [Concomitant]
     Active Substance: TOPIRAMATE
  6. PROPRANOLOL HYDROCHLORIDE [Concomitant]
     Active Substance: PROPRANOLOL HYDROCHLORIDE
  7. LITHIUM CARBONATE [Concomitant]
     Active Substance: LITHIUM CARBONATE
  8. TOPIRAMATE [Concomitant]
     Active Substance: TOPIRAMATE
  9. OLANZAPINE [Concomitant]
     Active Substance: OLANZAPINE
  10. METFORMIN HYDROCHLORIDE [Concomitant]
     Active Substance: METFORMIN HYDROCHLORIDE
  11. MAGNESIUM GLYCINATE [Concomitant]
     Active Substance: MAGNESIUM GLYCINATE
  12. DIETARY SUPPLEMENT [Concomitant]
     Active Substance: DIETARY SUPPLEMENT
  13. BERBERINE [Concomitant]
     Active Substance: BERBERINE

REACTIONS (5)
  - Mania [None]
  - Insomnia [None]
  - Paranoia [None]
  - Drug dependence [None]
  - Schizoaffective disorder bipolar type [None]

NARRATIVE: CASE EVENT DATE: 20150201
